FAERS Safety Report 17717196 (Version 1)
Quarter: 2020Q2

REPORT INFORMATION
  Report Type: Spontaneous
  Country: US (occurrence: US)
  Receive Date: 20200428
  Receipt Date: 20200428
  Transmission Date: 20200714
  Serious: Yes (Hospitalization, Other)
  Sender: FDA-Public Use
  Company Number: US-EMCURE PHARMACEUTICALS LTD-2020-EPL-000489

PATIENT
  Age: 77 Year
  Sex: Female

DRUGS (3)
  1. GEMCITABINE HYDROCHLORIDE. [Suspect]
     Active Substance: GEMCITABINE HYDROCHLORIDE
     Dosage: 1900 MILLIGRAM/SQ. METER
     Route: 065
     Dates: start: 20131023, end: 20140210
  2. NAB-PACLITAXEL [Suspect]
     Active Substance: PACLITAXEL
     Indication: ADENOCARCINOMA PANCREAS
     Dosage: 125 MILLIGRAM/SQ. METER, ON DAYS 1, 8 AND 15 (28-DAY CYCLE THERAPY)
     Route: 065
     Dates: start: 20130807, end: 20131009
  3. GEMCITABINE HYDROCHLORIDE. [Suspect]
     Active Substance: GEMCITABINE HYDROCHLORIDE
     Indication: ADENOCARCINOMA PANCREAS
     Dosage: 1000 MILLIGRAM/SQ. METER, ON DAYS 1, 8 AND 15 (28-DAY CYCLE THERAPY)
     Route: 065
     Dates: start: 20130807, end: 20131009

REACTIONS (5)
  - Gastrointestinal haemorrhage [Unknown]
  - Rash [Unknown]
  - Anaemia [Unknown]
  - Cardiac failure congestive [Recovered/Resolved]
  - Thrombocytopenia [Unknown]

NARRATIVE: CASE EVENT DATE: 20131012
